FAERS Safety Report 5805646-1 (Version None)
Quarter: 2008Q3

REPORT INFORMATION
  Report Type: 
  Country: None (occurrence: None)
  Receive Date: 20080710
  Receipt Date: 20080404
  Transmission Date: 20090109
  Serious: No
  Sender: FDA-Public Use
  Company Number: A0719393A

PATIENT
  Age: 52 Year
  Sex: Female

DRUGS (12)
  1. TYKERB [Suspect]
     Indication: BREAST CANCER
     Dosage: 1250MG PER DAY
     Route: 048
     Dates: start: 20080401
  2. XELODA [Concomitant]
  3. KYTRIL [Concomitant]
  4. ABRAXANE [Concomitant]
  5. EFFEXOR [Concomitant]
  6. ACIPHEX [Concomitant]
  7. NAPROSYN [Concomitant]
  8. MUCINEX DM [Concomitant]
  9. CLARITIN [Concomitant]
  10. AMBIEN [Concomitant]
  11. DARVOCET [Concomitant]
  12. GLUTAMINE [Concomitant]

REACTIONS (1)
  - DIARRHOEA [None]
